FAERS Safety Report 7207933-1 (Version None)
Quarter: 2010Q4

REPORT INFORMATION
  Report Type: 
  Country: None (occurrence: None)
  Receive Date: 20101221
  Receipt Date: 20101214
  Transmission Date: 20110411
  Serious: Yes (Hospitalization)
  Sender: FDA-Public Use
  Company Number: DSA_44505_2010

PATIENT
  Sex: Male

DRUGS (1)
  1. XENAZINE [Suspect]
     Indication: HICCUPS
     Dosage: 12.5 MG TID ORAL
     Route: 048
     Dates: start: 20100928

REACTIONS (2)
  - DEHYDRATION [None]
  - VOMITING [None]
